FAERS Safety Report 12997958 (Version 1)
Quarter: 2016Q4

REPORT INFORMATION
  Report Type: Spontaneous
  Country: US (occurrence: US)
  Receive Date: 20161205
  Receipt Date: 20161205
  Transmission Date: 20170207
  Serious: No
  Sender: FDA-Public Use
  Company Number: US-JNJFOC-20161130347

PATIENT
  Age: 65 Year
  Sex: Male

DRUGS (7)
  1. CLONIDINE. [Concomitant]
     Active Substance: CLONIDINE
  2. ZYPREXA [Concomitant]
     Active Substance: OLANZAPINE
  3. ALLOPURINOL. [Concomitant]
     Active Substance: ALLOPURINOL
  4. NORVASC [Concomitant]
     Active Substance: AMLODIPINE BESYLATE
  5. IMBRUVICA [Suspect]
     Active Substance: IBRUTINIB
     Indication: CHRONIC LYMPHOCYTIC LEUKAEMIA
     Route: 048
     Dates: start: 201407
  6. DEPAKOTE [Concomitant]
     Active Substance: DIVALPROEX SODIUM
  7. LIPITOR [Concomitant]
     Active Substance: ATORVASTATIN CALCIUM

REACTIONS (1)
  - Urine cannabinoids increased [Not Recovered/Not Resolved]

NARRATIVE: CASE EVENT DATE: 201610
